FAERS Safety Report 4379104-8 (Version None)
Quarter: 2004Q2

REPORT INFORMATION
  Report Type: 
  Country: None (occurrence: None)
  Receive Date: 20040610
  Receipt Date: 20040528
  Transmission Date: 20050107
  Serious: Yes (Other)
  Sender: FDA-Public Use
  Company Number: 2004021849

PATIENT
  Sex: Female
  Weight: 73.9363 kg

DRUGS (5)
  1. NARDIL [Suspect]
     Indication: DEPRESSION
     Dosage: 45 MG (3 IN 1 D), ORAL
     Route: 048
     Dates: start: 19850101
  2. NEURONTIN [Suspect]
     Indication: NERVE COMPRESSION
     Dosage: 600 MG (2 IN 1 D), ORAL
     Route: 048
     Dates: start: 20020101, end: 20020101
  3. ALPRAZOLAM [Concomitant]
  4. TRIOBE (CYANOCOBALAMIN, FOLIC ACID, PYRIDOXINE) [Concomitant]
  5. VITAMINS (VITAMINS) [Concomitant]

REACTIONS (15)
  - BALANCE DISORDER [None]
  - BODY HEIGHT DECREASED [None]
  - BREAST CANCER [None]
  - DRUG EFFECT DECREASED [None]
  - DRUG INEFFECTIVE [None]
  - DYSGEUSIA [None]
  - FATIGUE [None]
  - FEAR OF FALLING [None]
  - FEELING ABNORMAL [None]
  - IRRITABLE BOWEL SYNDROME [None]
  - MENTAL DISORDER [None]
  - OBSESSIVE THOUGHTS [None]
  - STRESS SYMPTOMS [None]
  - TARSAL TUNNEL SYNDROME [None]
  - TREATMENT NONCOMPLIANCE [None]
